FAERS Safety Report 23180618 (Version 1)
Quarter: 2023Q4

REPORT INFORMATION
  Report Type: Report from Study
  Country: US (occurrence: US)
  Receive Date: 20231114
  Receipt Date: 20231114
  Transmission Date: 20240110
  Serious: Yes (Other)
  Sender: FDA-Public Use
  Company Number: US-ABBVIE-5452118

PATIENT
  Sex: Female

DRUGS (4)
  1. RINVOQ [Suspect]
     Active Substance: UPADACITINIB
     Indication: Crohn^s disease
     Route: 048
     Dates: start: 20230910, end: 20231010
  2. RINVOQ [Suspect]
     Active Substance: UPADACITINIB
     Indication: Crohn^s disease
     Route: 048
     Dates: start: 202310, end: 20231030
  3. FLAGYL [Concomitant]
     Active Substance: METRONIDAZOLE\METRONIDAZOLE HYDROCHLORIDE
     Indication: Infection
  4. PREDNISONE [Concomitant]
     Active Substance: PREDNISONE
     Indication: Product used for unknown indication

REACTIONS (12)
  - Sepsis [Recovering/Resolving]
  - Pyelonephritis [Recovering/Resolving]
  - Klebsiella infection [Not Recovered/Not Resolved]
  - Nasal congestion [Unknown]
  - Blood pressure increased [Unknown]
  - Oral disorder [Unknown]
  - Body temperature increased [Unknown]
  - Cystitis [Unknown]
  - Heart rate abnormal [Unknown]
  - Abdominal discomfort [Not Recovered/Not Resolved]
  - Vaginal discharge [Unknown]
  - Feeling abnormal [Unknown]

NARRATIVE: CASE EVENT DATE: 20230101
